FAERS Safety Report 4621031-2 (Version None)
Quarter: 2005Q1

REPORT INFORMATION
  Report Type: 
  Country: None (occurrence: None)
  Receive Date: 20050325
  Receipt Date: 20050317
  Transmission Date: 20050727
  Serious: Yes (Life-Threatening, Hospitalization)
  Sender: FDA-Public Use
  Company Number: 2005AC00445

PATIENT
  Age: 46 Year
  Sex: Female

DRUGS (2)
  1. SEROQUEL [Suspect]
     Indication: PSYCHIATRIC SYMPTOM
     Dosage: 300 MG DAILY PO
     Route: 048
  2. DESOGESTREL AND ETHINYL ESTRADIOL [Concomitant]

REACTIONS (5)
  - ACETONAEMIA [None]
  - COMA [None]
  - HYPERGLYCAEMIA [None]
  - KETOACIDOSIS [None]
  - SHOCK [None]
